FAERS Safety Report 5371166-4 (Version None)
Quarter: 2007Q2

REPORT INFORMATION
  Report Type: 
  Country: None (occurrence: None)
  Receive Date: 20070614
  Receipt Date: 20070320
  Transmission Date: 20071010
  Serious: No
  Sender: FDA-Public Use
  Company Number: BDI-009284

PATIENT
  Age: 55 Year
  Sex: Male
  Weight: 107 kg

DRUGS (3)
  1. MULTIHANCE [Suspect]
     Indication: NUCLEAR MAGNETIC RESONANCE IMAGING
     Dosage: 24 ML ONCE IV
     Route: 042
     Dates: start: 20070302, end: 20070302
  2. MULTIHANCE [Suspect]
     Indication: SPINAL COLUMN STENOSIS
     Dosage: 24 ML ONCE IV
     Route: 042
     Dates: start: 20070302, end: 20070302
  3. HYPERTENSION [Concomitant]

REACTIONS (5)
  - BLISTER [None]
  - BURNING SENSATION [None]
  - ERYTHEMA [None]
  - NAUSEA [None]
  - OEDEMA PERIPHERAL [None]
